FAERS Safety Report 6781586-9 (Version None)
Quarter: 2010Q2

REPORT INFORMATION
  Report Type: 
  Country: None (occurrence: None)
  Receive Date: 20100617
  Receipt Date: 20100617
  Transmission Date: 20101027
  Serious: Yes (Other)
  Sender: FDA-Public Use
  Company Number: None

PATIENT
  Age: 49 Year
  Sex: Female
  Weight: 88.4514 kg

DRUGS (2)
  1. TOPIRAMATE [Suspect]
     Indication: MIGRAINE
     Dosage: 25MG/25MG 4 NIGHTS/WK
     Dates: start: 20100414
  2. TOPIRAMATE [Suspect]
     Dosage: 50/50 = 100MG PM. AM
     Dates: end: 20100521

REACTIONS (9)
  - AREFLEXIA [None]
  - ASTHENIA [None]
  - CONFUSIONAL STATE [None]
  - DIZZINESS [None]
  - GROIN PAIN [None]
  - PAIN IN EXTREMITY [None]
  - PALPITATIONS [None]
  - RESTLESSNESS [None]
  - SENSATION OF HEAVINESS [None]
